FAERS Safety Report 19275699 (Version 1)
Quarter: 2021Q2

REPORT INFORMATION
  Report Type: Spontaneous
  Country: JP (occurrence: JP)
  Receive Date: 20210519
  Receipt Date: 20210519
  Transmission Date: 20210717
  Serious: Yes (Hospitalization, Other)
  Sender: FDA-Public Use
  Company Number: JP-DSJP-DSJ-2021-114319

PATIENT
  Age: 74 Year
  Sex: Male

DRUGS (2)
  1. LIXIANA TABLETS [Suspect]
     Active Substance: EDOXABAN TOSYLATE
     Indication: ATRIAL FIBRILLATION
     Dosage: 60MG/DAY
     Route: 065
  2. IODINE?CONTAINING CONTRAST MEDIUM [Suspect]
     Active Substance: IODINE
     Dosage: UNK
     Route: 065

REACTIONS (4)
  - Coeliac artery compression syndrome [Unknown]
  - Haematoma [Unknown]
  - Aneurysm ruptured [Unknown]
  - Renal impairment [Recovering/Resolving]
